FAERS Safety Report 8244496-6 (Version None)
Quarter: 2012Q1

REPORT INFORMATION
  Report Type: 
  Country: None (occurrence: None)
  Receive Date: 20120329
  Receipt Date: 20120314
  Transmission Date: 20120608
  Serious: Yes (Other)
  Sender: FDA-Public Use
  Company Number: PHHY2012JP020453

PATIENT
  Sex: Male

DRUGS (8)
  1. BUSULFAN [Concomitant]
     Indication: CHRONIC LYMPHOCYTIC LEUKAEMIA
     Dosage: UNK UKN, UNK
  2. NEORAL [Suspect]
     Dosage: UNK UKN, UNK
     Dates: start: 20070401, end: 20070101
  3. NEORAL [Suspect]
     Indication: PROPHYLAXIS AGAINST GRAFT VERSUS HOST DISEASE
     Dosage: UNK UKN, UNK
     Dates: end: 20050201
  4. MYCOPHENOLATE MOFETIL [Concomitant]
     Indication: STEM CELL TRANSPLANT
     Dosage: UNK UKN, UNK
     Route: 048
  5. CHOP [Concomitant]
     Indication: CHRONIC LYMPHOCYTIC LEUKAEMIA
     Dosage: UNK UKN, UNK
  6. IRRADIATION [Concomitant]
     Indication: CHRONIC LYMPHOCYTIC LEUKAEMIA
     Dosage: 4 GY, UNK
  7. FLUDARABINE PHOSPHATE [Concomitant]
     Indication: CHRONIC LYMPHOCYTIC LEUKAEMIA
     Dosage: UNK UKN, UNK
  8. METHOTREXATE [Concomitant]
     Dosage: UNK UKN, UNK

REACTIONS (5)
  - CHRONIC LYMPHOCYTIC LEUKAEMIA RECURRENT [None]
  - PIGMENTATION DISORDER [None]
  - LUNG DISORDER [None]
  - LICHEN PLANUS [None]
  - GRAFT VERSUS HOST DISEASE IN SKIN [None]
